FAERS Safety Report 5657024-6 (Version None)
Quarter: 2008Q1

REPORT INFORMATION
  Report Type: 
  Country: None (occurrence: None)
  Receive Date: 20080310
  Receipt Date: 20080229
  Transmission Date: 20080703
  Serious: Yes (Hospitalization)
  Sender: FDA-Public Use
  Company Number: JP-ASTRAZENECA-2008AP01569

PATIENT
  Age: 65 Year
  Sex: Male

DRUGS (9)
  1. CRESTOR [Suspect]
     Indication: HYPERLIPIDAEMIA
     Route: 048
  2. ONON [Concomitant]
     Dosage: DOSE UNKNOWN
     Route: 048
  3. SELBEX [Concomitant]
     Dosage: DOSE UNKNOWN
     Route: 048
  4. PANTOSIN [Concomitant]
     Dosage: DOSE UNKNOWN
     Route: 065
  5. HARNAL D [Concomitant]
     Dosage: DOSE UNKNOWN
     Route: 048
  6. STOGAR [Concomitant]
     Dosage: FREQUENCY UNKNOWN
     Route: 048
  7. MUCODYNE [Concomitant]
     Dosage: DOSE UNKNOWN
     Route: 048
  8. ASPIRIN [Concomitant]
     Dosage: DOSE UNKNOWN
     Route: 048
  9. SEREVENT [Concomitant]
     Dosage: DOSE UNKNOWN
     Route: 055

REACTIONS (3)
  - PLATELET COUNT DECREASED [None]
  - PYREXIA [None]
  - RASH [None]
